FAERS Safety Report 6278255-0 (Version None)
Quarter: 2009Q3

REPORT INFORMATION
  Report Type: 
  Country: None (occurrence: None)
  Receive Date: 20090722
  Receipt Date: 20090713
  Transmission Date: 20100115
  Serious: Yes (Hospitalization)
  Sender: FDA-Public Use
  Company Number: IT-ABBOTT-09P-083-0584771-00

PATIENT
  Sex: Female

DRUGS (2)
  1. KLACID [Suspect]
     Indication: BRONCHOPNEUMONIA
     Route: 048
     Dates: start: 20090618, end: 20090620
  2. FLIXOTIDE [Concomitant]
     Indication: BRONCHOSTENOSIS
     Dates: start: 20090618, end: 20090620

REACTIONS (2)
  - GENERALISED ERYTHEMA [None]
  - PRURITUS [None]
